FAERS Safety Report 7439566-6 (Version None)
Quarter: 2011Q2

REPORT INFORMATION
  Report Type: 
  Country: None (occurrence: None)
  Receive Date: 20110427
  Receipt Date: 20110422
  Transmission Date: 20111010
  Serious: Yes (Other)
  Sender: FDA-Public Use
  Company Number: KR-PFIZER INC-2011088162

PATIENT

DRUGS (2)
  1. NEURONTIN [Suspect]
     Dosage: 600 MG/DAY
     Route: 048
  2. NEURONTIN [Suspect]
     Dosage: 900 MG/DAY
     Route: 048

REACTIONS (1)
  - BLOOD GLUCOSE INCREASED [None]
